FAERS Safety Report 8921964 (Version 1)
Quarter: 2012Q4

REPORT INFORMATION
  Report Type: Spontaneous
  Country: US (occurrence: None)
  Receive Date: 20121119
  Receipt Date: 20121119
  Transmission Date: 20130627
  Serious: Yes (Other)
  Sender: FDA-Public Use
  Company Number: None

PATIENT
  Age: 83 Year
  Sex: Female
  Weight: 79.38 kg

DRUGS (1)
  1. LATANOPROST [Suspect]
     Indication: GLAUCOMA
     Dosage: 1 drop Qhs Ophthalmic
     Route: 047
     Dates: start: 20121010, end: 20121010

REACTIONS (4)
  - Product substitution issue [None]
  - Lacrimation increased [None]
  - Ocular hyperaemia [None]
  - Eye pain [None]
